FAERS Safety Report 8320783-8 (Version None)
Quarter: 2012Q2

REPORT INFORMATION
  Report Type: 
  Country: None (occurrence: None)
  Receive Date: 20120430
  Receipt Date: 20120417
  Transmission Date: 20120825
  Serious: Yes (Other)
  Sender: FDA-Public Use
  Company Number: PHHO2012JP003335

PATIENT
  Sex: Male
  Weight: 61 kg

DRUGS (1)
  1. NEORAL [Suspect]
     Indication: PSORIASIS
     Dosage: UNK UKN, UNK
     Route: 048
     Dates: start: 20021201

REACTIONS (6)
  - BENIGN PROSTATIC HYPERPLASIA [None]
  - NEUROGENIC BLADDER [None]
  - HYPERTENSION [None]
  - GASTRITIS [None]
  - COLONIC POLYP [None]
  - NEUROPATHY PERIPHERAL [None]
